FAERS Safety Report 8314249-9 (Version None)
Quarter: 2012Q2

REPORT INFORMATION
  Report Type: 
  Country: None (occurrence: None)
  Receive Date: 20120426
  Receipt Date: 20120423
  Transmission Date: 20120825
  Serious: Yes (Other)
  Sender: FDA-Public Use
  Company Number: PHHY2012TN034333

PATIENT
  Age: 38 Year
  Sex: Male

DRUGS (5)
  1. TACROLIMUS [Interacting]
     Dosage: 2 MG, PER DAY
  2. TACROLIMUS [Suspect]
     Dosage: 10 MG, PER DAY
     Dates: start: 20080301
  3. MYCOPHENOLIC ACID [Concomitant]
     Dosage: 1500 MG, PER DAY
  4. PREDNISONE TAB [Concomitant]
     Dosage: 10 MG, PER DAY
  5. THEOPHYLLINE [Interacting]
     Dosage: 300 MG, PER DAY
     Dates: start: 20090601

REACTIONS (3)
  - RENAL IMPAIRMENT [None]
  - IMMUNOSUPPRESSANT DRUG LEVEL INCREASED [None]
  - DRUG INTERACTION [None]
